FAERS Safety Report 7083618-X (Version None)
Quarter: 2010Q4

REPORT INFORMATION
  Report Type: 
  Country: None (occurrence: None)
  Receive Date: 20101103
  Receipt Date: 20101103
  Transmission Date: 20110411
  Serious: Yes (Life-Threatening)
  Sender: FDA-Public Use
  Company Number: None

PATIENT
  Age: 49 Year
  Sex: Female

DRUGS (4)
  1. PACLITAXEL [Suspect]
     Indication: UTERINE CANCER
     Dosage: 300 MG Q3WKS IV
     Route: 042
  2. ZOFRAN [Concomitant]
  3. BENADRY [Concomitant]
  4. DECADRON [Concomitant]

REACTIONS (4)
  - CHEST PAIN [None]
  - ERYTHEMA [None]
  - PAIN [None]
  - RESPIRATORY DISTRESS [None]
